FAERS Safety Report 15636185 (Version 1)
Quarter: 2018Q4

REPORT INFORMATION
  Report Type: Spontaneous
  Country: FI (occurrence: FI)
  Receive Date: 20181120
  Receipt Date: 20181120
  Transmission Date: 20190205
  Serious: Yes (Other)
  Sender: FDA-Public Use
  Company Number: FI-TEVA-2018-FI-976992

PATIENT
  Sex: Male

DRUGS (1)
  1. OXYCODONE [Suspect]
     Active Substance: OXYCODONE
     Route: 065

REACTIONS (13)
  - Spinal cord injury [Unknown]
  - CSF protein increased [Unknown]
  - CSF white blood cell count positive [Unknown]
  - Blood creatine phosphokinase increased [Unknown]
  - Cervical spinal stenosis [Unknown]
  - Compartment syndrome [Unknown]
  - Paresis [Unknown]
  - Somnolence [Unknown]
  - Muscular weakness [Unknown]
  - Spinal cord ischaemia [Unknown]
  - Drug abuse [Unknown]
  - Swelling [Unknown]
  - Rhabdomyolysis [Unknown]
